FAERS Safety Report 17227632 (Version 1)
Quarter: 2020Q1

REPORT INFORMATION
  Report Type: Spontaneous
  Country: US (occurrence: US)
  Receive Date: 20200103
  Receipt Date: 20200103
  Transmission Date: 20200409
  Serious: No
  Sender: FDA-Public Use
  Company Number: US-TEVA-2020-US-1163582

PATIENT
  Sex: Female

DRUGS (1)
  1. ESTRADIOL. [Suspect]
     Active Substance: ESTRADIOL
     Dosage: 10 MCG
     Route: 067

REACTIONS (4)
  - Vaginal erosion [Unknown]
  - Vaginal haemorrhage [Unknown]
  - Drug delivery system issue [Unknown]
  - Vulvovaginal pain [Unknown]
